FAERS Safety Report 7822760-X (Version None)
Quarter: 2011Q4

REPORT INFORMATION
  Report Type: 
  Country: None (occurrence: None)
  Receive Date: 20111018
  Receipt Date: 20111005
  Transmission Date: 20120403
  Serious: Yes (Other)
  Sender: FDA-Public Use
  Company Number: US-MYLANLABS-2011S1021212

PATIENT
  Age: 5 Decade
  Sex: Male

DRUGS (2)
  1. STAVUDINE [Suspect]
     Indication: HIV INFECTION
     Route: 065
     Dates: start: 19960101, end: 20090101
  2. ZIDOVUDINE [Suspect]
     Indication: HIV INFECTION
     Route: 065
     Dates: start: 19870101, end: 19950101

REACTIONS (3)
  - LAGOPHTHALMOS [None]
  - LIPOATROPHY [None]
  - ENOPHTHALMOS [None]
